FAERS Safety Report 8608819-8 (Version None)
Quarter: 2012Q3

REPORT INFORMATION
  Report Type: 
  Country: None (occurrence: None)
  Receive Date: 20120821
  Receipt Date: 20120815
  Transmission Date: 20120928
  Serious: No
  Sender: FDA-Public Use
  Company Number: US-PFIZER INC-2012201013

PATIENT
  Age: 65 Year
  Sex: Female
  Weight: 79.365 kg

DRUGS (3)
  1. LOSARTAN POTASSIUM AND HYDROCHLOROTHIAZIDE [Concomitant]
     Indication: HYPERTENSION
     Dosage: 50/12.5 MG, DAILY
  2. LYRICA [Suspect]
     Indication: FIBROMYALGIA
     Dosage: 150 MG, 3X/DAY
  3. VENLAFAXINE HYDROCHLORIDE [Concomitant]
     Indication: DEPRESSION
     Dosage: 150 MG, DAILY

REACTIONS (2)
  - RHINORRHOEA [None]
  - NASOPHARYNGITIS [None]
